FAERS Safety Report 14088531 (Version 2)
Quarter: 2017Q4

REPORT INFORMATION
  Report Type: Spontaneous
  Country: US (occurrence: US)
  Receive Date: 20171013
  Receipt Date: 20171031
  Transmission Date: 20180321
  Serious: Yes (Hospitalization, Other)
  Sender: FDA-Public Use
  Company Number: US-MAYNE PHARMA-2017MYN001835

PATIENT

DRUGS (4)
  1. INVEGA [Concomitant]
     Active Substance: PALIPERIDONE
  2. EFFEXOR [Concomitant]
     Active Substance: VENLAFAXINE HYDROCHLORIDE
  3. IRON SULFATE [Concomitant]
     Active Substance: FERROUS SULFATE ANHYDROUS
  4. CLOZAPINE. [Suspect]
     Active Substance: CLOZAPINE
     Indication: SCHIZOPHRENIA
     Dosage: 150 MG, UNK

REACTIONS (4)
  - Foot fracture [Unknown]
  - Loss of personal independence in daily activities [Unknown]
  - Living in residential institution [Unknown]
  - Anaemia [Unknown]
